FAERS Safety Report 25346430 (Version 1)
Quarter: 2025Q2

REPORT INFORMATION
  Report Type: Spontaneous
  Country: JP (occurrence: JP)
  Receive Date: 20250522
  Receipt Date: 20250522
  Transmission Date: 20250716
  Serious: Yes (Other)
  Sender: MERCK SHARP & DOHME LLC
  Company Number: JP-009507513-2287577

PATIENT
  Age: 7 Decade
  Sex: Female

DRUGS (2)
  1. KEYTRUDA [Suspect]
     Active Substance: PEMBROLIZUMAB
     Indication: Papillary serous endometrial carcinoma
  2. LENVATINIB [Suspect]
     Active Substance: LENVATINIB
     Indication: Papillary serous endometrial carcinoma

REACTIONS (6)
  - Hepatic rupture [Unknown]
  - Malignant neoplasm progression [Unknown]
  - Malaise [Unknown]
  - Hypertension [Unknown]
  - Proteinuria [Unknown]
  - Hepatic function abnormal [Unknown]
